FAERS Safety Report 13540671 (Version 1)
Quarter: 2017Q2

REPORT INFORMATION
  Report Type: Spontaneous
  Country: IL (occurrence: IL)
  Receive Date: 20170512
  Receipt Date: 20170512
  Transmission Date: 20170830
  Serious: Yes (Other)
  Sender: FDA-Public Use
  Company Number: IL-TEVA-768679ACC

PATIENT
  Age: 78 Year
  Sex: Female

DRUGS (1)
  1. RIBOMUSTIN [Suspect]
     Active Substance: BENDAMUSTINE HYDROCHLORIDE
     Indication: MARGINAL ZONE LYMPHOMA
     Route: 042

REACTIONS (2)
  - Hepatitis [Unknown]
  - Mass [Unknown]
